FAERS Safety Report 12089853 (Version 1)
Quarter: 2016Q1

REPORT INFORMATION
  Report Type: Spontaneous
  Country: US (occurrence: US)
  Receive Date: 20160218
  Receipt Date: 20160218
  Transmission Date: 20160526
  Serious: Yes (Death)
  Sender: FDA-Public Use
  Company Number: US-SEATTLE GENETICS-2016SGN00209

PATIENT

DRUGS (5)
  1. IFOSFAMIDE. [Suspect]
     Active Substance: IFOSFAMIDE
     Indication: PERIPHERAL T-CELL LYMPHOMA UNSPECIFIED
     Route: 065
  2. ROMIDEPSIN [Suspect]
     Active Substance: ROMIDEPSIN
     Indication: PERIPHERAL T-CELL LYMPHOMA UNSPECIFIED
     Dosage: 14 MG/M2, QCYCLE
     Route: 042
  3. ADCETRIS [Suspect]
     Active Substance: BRENTUXIMAB VEDOTIN
     Indication: PERIPHERAL T-CELL LYMPHOMA UNSPECIFIED
     Route: 065
  4. CARBOPLATIN. [Suspect]
     Active Substance: CARBOPLATIN
     Indication: PERIPHERAL T-CELL LYMPHOMA UNSPECIFIED
     Route: 065
  5. ETOPOSIDE. [Suspect]
     Active Substance: ETOPOSIDE
     Indication: PERIPHERAL T-CELL LYMPHOMA UNSPECIFIED
     Route: 065

REACTIONS (4)
  - Anaemia [Unknown]
  - Urosepsis [Fatal]
  - Thrombocytopenia [Unknown]
  - Peripheral T-cell lymphoma unspecified [Unknown]
